FAERS Safety Report 25986165 (Version 2)
Quarter: 2025Q4

REPORT INFORMATION
  Report Type: Spontaneous
  Country: US (occurrence: US)
  Receive Date: 20251031
  Receipt Date: 20251106
  Transmission Date: 20260118
  Serious: No
  Sender: BIOMARIN
  Company Number: US-BIOMARINAP-US-2025-169794

PATIENT
  Age: 10 Year
  Sex: Female
  Weight: 39.545 kg

DRUGS (2)
  1. VOXZOGO [Suspect]
     Active Substance: VOSORITIDE
     Indication: Osteochondrodysplasia
     Dosage: UNK, QD
     Dates: start: 20240112
  2. VOXZOGO [Suspect]
     Active Substance: VOSORITIDE
     Indication: Disease susceptibility

REACTIONS (3)
  - Ear infection [Unknown]
  - Hypoacusis [Unknown]
  - Excessive cerumen production [Unknown]

NARRATIVE: CASE EVENT DATE: 20251024
